FAERS Safety Report 10408292 (Version 3)
Quarter: 2014Q3

REPORT INFORMATION
  Report Type: Spontaneous
  Country: PL (occurrence: PL)
  Receive Date: 20140826
  Receipt Date: 20140930
  Transmission Date: 20150326
  Serious: Yes (Hospitalization)
  Sender: FDA-Public Use
  Company Number: PL-BIOGENIDEC-2014BI084837

PATIENT
  Age: 48 Year
  Sex: Female
  Weight: 67 kg

DRUGS (8)
  1. TYSABRI [Suspect]
     Active Substance: NATALIZUMAB
     Indication: RELAPSING-REMITTING MULTIPLE SCLEROSIS
     Route: 042
     Dates: start: 20140328
  2. ATORIS [Concomitant]
     Active Substance: ATORVASTATIN CALCIUM
  3. IMOVANE [Concomitant]
     Active Substance: ZOPICLONE
  4. TYSABRI [Suspect]
     Active Substance: NATALIZUMAB
     Indication: RELAPSING-REMITTING MULTIPLE SCLEROSIS
     Route: 042
     Dates: start: 201103
  5. SORBIFER DURULES [Concomitant]
  6. ACIDUM FOLICUM [Concomitant]
     Active Substance: FOLIC ACID
  7. HYDROXIZINUM [Concomitant]
  8. IMOVANE [Concomitant]
     Active Substance: ZOPICLONE

REACTIONS (5)
  - Pneumothorax spontaneous [Recovered/Resolved]
  - C-reactive protein increased [Unknown]
  - Electrolyte imbalance [Unknown]
  - Anaemia [Unknown]
  - Leukocytosis [Unknown]

NARRATIVE: CASE EVENT DATE: 201404
